FAERS Safety Report 15135340 (Version 1)
Quarter: 2018Q3

REPORT INFORMATION
  Report Type: Spontaneous
  Country: US (occurrence: US)
  Receive Date: 20180616
  Receipt Date: 20180616
  Transmission Date: 20181010
  Serious: Yes (Disabling, Other)
  Sender: FDA-Public Use
  Company Number: None

PATIENT
  Age: 41 Year
  Sex: Female
  Weight: 144 kg

DRUGS (4)
  1. LINOSPIR [Concomitant]
  2. CIPRO [Suspect]
     Active Substance: CIPROFLOXACIN HYDROCHLORIDE
     Indication: KIDNEY INFECTION
     Dates: start: 20180610, end: 20180614
  3. PROZAC [Concomitant]
     Active Substance: FLUOXETINE HYDROCHLORIDE
  4. FIBUPROFEN [Concomitant]

REACTIONS (8)
  - Swelling face [None]
  - Drug hypersensitivity [None]
  - Swelling [None]
  - Tic [None]
  - Confusional state [None]
  - Swollen tongue [None]
  - Contusion [None]
  - Stomatitis [None]

NARRATIVE: CASE EVENT DATE: 20180614
